FAERS Safety Report 9207999 (Version 2)
Quarter: 2013Q2

REPORT INFORMATION
  Report Type: Spontaneous
  Country: DE (occurrence: DE)
  Receive Date: 20130403
  Receipt Date: 20130501
  Transmission Date: 20140414
  Serious: No
  Sender: FDA-Public Use
  Company Number: DE-B.I. PHARMACEUTICALS,INC./RIDGEFIELD-2013-DE-01001DE

PATIENT
  Sex: Female
  Weight: 63 kg

DRUGS (7)
  1. PRADAXA [Suspect]
     Indication: HAEMODILUTION
     Dosage: 300 MG
     Route: 048
  2. PRADAXA [Suspect]
     Indication: CEREBROVASCULAR ACCIDENT
  3. AMIODARON [Concomitant]
     Dosage: 200 NR
  4. AMLODIPIN [Concomitant]
     Dosage: 20 MG
  5. RAMIPRIL [Concomitant]
     Dosage: 5 MG
  6. SIMVASTATIN [Concomitant]
     Dosage: 40 MG
  7. PANTOPRAZOL [Concomitant]
     Dosage: 40 MG

REACTIONS (2)
  - Pain in extremity [Unknown]
  - Pain in extremity [Unknown]
